FAERS Safety Report 6268857-X (Version None)
Quarter: 2009Q3

REPORT INFORMATION
  Report Type: 
  Country: None (occurrence: None)
  Receive Date: 20090715
  Receipt Date: 20090710
  Transmission Date: 20100115
  Serious: Yes (Death, Other)
  Sender: FDA-Public Use
  Company Number: DE-CELGENEUS-062-50794-09070778

PATIENT

DRUGS (3)
  1. VIDAZA [Suspect]
     Route: 058
  2. VIDAZA [Suspect]
  3. DONOR LYMPHOCYTE INFUSIONS [Suspect]
     Indication: DRUG USE FOR UNKNOWN INDICATION
     Route: 051

REACTIONS (4)
  - DEATH [None]
  - GRAFT VERSUS HOST DISEASE [None]
  - NEUTROPENIA [None]
  - NO THERAPEUTIC RESPONSE [None]
